FAERS Safety Report 5979988-3 (Version None)
Quarter: 2008Q4

REPORT INFORMATION
  Report Type: 
  Country: None (occurrence: None)
  Receive Date: 20081205
  Receipt Date: 20081125
  Transmission Date: 20090506
  Serious: Yes (Hospitalization, Other)
  Sender: FDA-Public Use
  Company Number: BR-BAYER-200821423LA

PATIENT
  Age: 0 Hour
  Sex: Female
  Weight: 10 kg

DRUGS (1)
  1. YASMIN [Suspect]
     Indication: DRUG EXPOSURE DURING PREGNANCY
     Route: 064

REACTIONS (5)
  - HYPOGLYCAEMIA [None]
  - MONOPLEGIA [None]
  - NEONATAL RESPIRATORY DISTRESS SYNDROME [None]
  - PREMATURE BABY [None]
  - SMALL FOR DATES BABY [None]
